FAERS Safety Report 14850616 (Version 1)
Quarter: 2018Q2

REPORT INFORMATION
  Report Type: Spontaneous
  Country: US (occurrence: US)
  Receive Date: 20180506
  Receipt Date: 20180506
  Transmission Date: 20180711
  Serious: No
  Sender: FDA-Public Use
  Company Number: US-ASTRAZENECA-2018SE45938

PATIENT
  Sex: Female

DRUGS (1)
  1. SYMBICORT [Suspect]
     Active Substance: BUDESONIDE\FORMOTEROL FUMARATE DIHYDRATE
     Dosage: 160/4.5 UNKNOWN FREQUENCY UNKNOWN
     Route: 055

REACTIONS (6)
  - Product quality issue [Unknown]
  - Feeling abnormal [Unknown]
  - Visual impairment [Unknown]
  - Fatigue [Unknown]
  - Drug ineffective [Unknown]
  - Drug dose omission [Unknown]
